FAERS Safety Report 9787582 (Version 2)
Quarter: 2014Q1

REPORT INFORMATION
  Report Type: Spontaneous
  Country: US (occurrence: None)
  Receive Date: 20131226
  Receipt Date: 20140204
  Transmission Date: 20141002
  Serious: Yes (Other)
  Sender: FDA-Public Use
  Company Number: 20130716

PATIENT
  Age: 19 Month
  Sex: Male

DRUGS (3)
  1. MANNITOL [Suspect]
     Indication: DEHYDRATION
     Route: 040
  2. MANNITOL [Suspect]
     Indication: DIURETIC THERAPY
     Route: 040
  3. CISPLATIN [Concomitant]

REACTIONS (1)
  - Anaphylactic reaction [None]
